FAERS Safety Report 22309278 (Version 1)
Quarter: 2023Q2

REPORT INFORMATION
  Report Type: Spontaneous
  Country: CH (occurrence: CH)
  Receive Date: 20230511
  Receipt Date: 20230511
  Transmission Date: 20230721
  Serious: Yes (Other)
  Sender: FDA-Public Use
  Company Number: CH-OTSUKA-2023_009521

PATIENT
  Age: 32 Year
  Sex: Female
  Weight: 60 kg

DRUGS (3)
  1. ABILIFY [Suspect]
     Active Substance: ARIPIPRAZOLE
     Indication: Schizophrenia
     Dosage: 5 MG, QD
     Route: 065
  2. ABILIFY [Suspect]
     Active Substance: ARIPIPRAZOLE
     Dosage: 10 MG, QD (5 MG TABLET X 2)
     Route: 065
  3. ABILIFY [Suspect]
     Active Substance: ARIPIPRAZOLE
     Dosage: 7.5 MG, QD (5 MG AND SPLIT 5 MG TABLET)
     Route: 065

REACTIONS (8)
  - Auditory disorder [Unknown]
  - Daydreaming [Unknown]
  - Psychotic disorder [Unknown]
  - Hypoacusis [Unknown]
  - Bradyphrenia [Unknown]
  - Logorrhoea [Unknown]
  - Depersonalisation/derealisation disorder [Unknown]
  - Wrong technique in product usage process [Unknown]
